FAERS Safety Report 6394115-9 (Version None)
Quarter: 2009Q4

REPORT INFORMATION
  Report Type: 
  Country: None (occurrence: None)
  Receive Date: 20091008
  Receipt Date: 20090928
  Transmission Date: 20100525
  Serious: Yes (Hospitalization)
  Sender: FDA-Public Use
  Company Number: FR-PFIZER INC-2009274558

PATIENT
  Age: 48 Year

DRUGS (6)
  1. SOLU-MEDROL [Suspect]
     Indication: PREMEDICATION
     Dosage: UNK
     Route: 042
     Dates: start: 20090724, end: 20090724
  2. RANITIDINE HCL [Suspect]
     Indication: PREMEDICATION
     Dosage: UNK
     Route: 042
     Dates: start: 20090724, end: 20090724
  3. POLARAMINE [Suspect]
     Indication: PREMEDICATION
     Dosage: 5 MG/ML, UNK
     Route: 042
     Dates: start: 20090724, end: 20090724
  4. ERBITUX [Suspect]
     Indication: BREAST CANCER
     Dosage: UNK
     Route: 042
     Dates: start: 20090710, end: 20090724
  5. ERBITUX [Suspect]
     Indication: METASTASES TO LUNG
  6. ERBITUX [Suspect]
     Indication: METASTASES TO SKIN

REACTIONS (3)
  - CYTOLYTIC HEPATITIS [None]
  - HAEMOLYSIS [None]
  - RENAL FAILURE [None]
